FAERS Safety Report 17349904 (Version 1)
Quarter: 2020Q1

REPORT INFORMATION
  Report Type: Spontaneous
  Country: US (occurrence: US)
  Receive Date: 20200130
  Receipt Date: 20200130
  Transmission Date: 20200409
  Serious: Yes (Death, Life-Threatening, Hospitalization, Other)
  Sender: FDA-Public Use
  Company Number: US-HIKMA PHARMACEUTICALS USA INC.-US-H14001-20-50503

PATIENT
  Age: 20 Year
  Sex: Female

DRUGS (2)
  1. METHOTREXATE. [Suspect]
     Active Substance: METHOTREXATE
     Indication: B PRECURSOR TYPE ACUTE LEUKAEMIA
     Route: 037
  2. METHOTREXATE. [Suspect]
     Active Substance: METHOTREXATE
     Indication: B PRECURSOR TYPE ACUTE LEUKAEMIA
     Dosage: ()
     Route: 037

REACTIONS (8)
  - Cerebral venous thrombosis [Unknown]
  - Neurotoxicity [Fatal]
  - Dystonia [Unknown]
  - Pneumonia [Unknown]
  - Autonomic nervous system imbalance [Unknown]
  - Leukoencephalopathy [Fatal]
  - Cerebral haemorrhage [Unknown]
  - Respiratory failure [Unknown]
